FAERS Safety Report 15617995 (Version 1)
Quarter: 2018Q4

REPORT INFORMATION
  Report Type: Spontaneous
  Country: IT (occurrence: IT)
  Receive Date: 20181114
  Receipt Date: 20181114
  Transmission Date: 20190205
  Serious: Yes (Hospitalization, Other)
  Sender: FDA-Public Use
  Company Number: IT-MYLANLABS-2018M1085798

PATIENT
  Age: 70 Year
  Sex: Male

DRUGS (4)
  1. MADOPAR HBS [Suspect]
     Active Substance: BENSERAZIDE HYDROCHLORIDE\LEVODOPA
     Indication: PARKINSON^S DISEASE
     Dosage: 2 DF, UNK
  2. RASAGILINE MESILATE [Suspect]
     Active Substance: RASAGILINE MESYLATE
     Indication: PARKINSON^S DISEASE
     Dosage: 1 MG, QD
  3. ROTIGOTINE [Suspect]
     Active Substance: ROTIGOTINE
     Indication: PARKINSON^S DISEASE
     Dosage: 4 MG, QD
     Route: 062
  4. SIRIO [Suspect]
     Active Substance: CARBIDOPA\MELEVODOPA
     Indication: PARKINSON^S DISEASE
     Dosage: 500 MG, Q5H

REACTIONS (6)
  - On and off phenomenon [Recovering/Resolving]
  - Freezing phenomenon [Recovering/Resolving]
  - Insomnia [Recovering/Resolving]
  - Akinesia [Recovered/Resolved]
  - Drug ineffective [Recovered/Resolved]
  - Camptocormia [Recovering/Resolving]
